FAERS Safety Report 9277187 (Version 5)
Quarter: 2019Q3

REPORT INFORMATION
  Report Type: Spontaneous
  Country: BR (occurrence: BR)
  Receive Date: 20130508
  Receipt Date: 20190826
  Transmission Date: 20191005
  Serious: Yes (Other)
  Sender: FDA-Public Use
  Company Number: BR-AMGEN-BRASP2007000143

PATIENT
  Age: 61 Year
  Sex: Male
  Weight: 87 kg

DRUGS (3)
  1. ENBREL [Suspect]
     Active Substance: ETANERCEPT
     Dosage: 50 MILLIGRAM
     Route: 065
     Dates: start: 200710
  2. ARAVA [Concomitant]
     Active Substance: LEFLUNOMIDE
     Indication: ARTHRITIS
     Dosage: UNK
  3. ENBREL [Suspect]
     Active Substance: ETANERCEPT
     Indication: RHEUMATOID ARTHRITIS
     Dosage: 25 MILLIGRAM, 2 TIMES/WK
     Route: 058
     Dates: start: 2007

REACTIONS (18)
  - Pain in extremity [Unknown]
  - Diabetes mellitus [Unknown]
  - Headache [Recovered/Resolved]
  - Pain [Recovered/Resolved]
  - Cataract [Unknown]
  - Arthralgia [Unknown]
  - Musculoskeletal pain [Unknown]
  - Injection site pain [Unknown]
  - Blood glucose abnormal [Unknown]
  - Insomnia [Unknown]
  - Muscle spasms [Unknown]
  - Peripheral swelling [Unknown]
  - Pruritus [Unknown]
  - Corneal infection [Unknown]
  - Joint lock [Unknown]
  - Chemical burns of eye [Unknown]
  - Visual impairment [Unknown]
  - Hypertension [Unknown]

NARRATIVE: CASE EVENT DATE: 2008
